FAERS Safety Report 18992657 (Version 4)
Quarter: 2021Q2

REPORT INFORMATION
  Report Type: Spontaneous
  Country: BR (occurrence: BR)
  Receive Date: 20210310
  Receipt Date: 20210405
  Transmission Date: 20210717
  Serious: Yes (Hospitalization, Other)
  Sender: FDA-Public Use
  Company Number: BR-JNJFOC-20210313238

PATIENT
  Age: 53 Year
  Sex: Female

DRUGS (3)
  1. CLEXANE [Concomitant]
     Active Substance: ENOXAPARIN SODIUM
  2. RIVAROXABAN [Suspect]
     Active Substance: RIVAROXABAN
     Dosage: 15 MG, QD
     Route: 048
     Dates: start: 20210227
  3. RIVAROXABAN [Suspect]
     Active Substance: RIVAROXABAN
     Indication: THROMBOSIS PROPHYLAXIS
     Dosage: 15 MG, QD
     Route: 048
     Dates: start: 2019

REACTIONS (7)
  - Abdominal pain [Recovered/Resolved]
  - Metastases to peritoneum [Unknown]
  - Intestinal metastasis [Unknown]
  - SARS-CoV-2 test positive [Not Recovered/Not Resolved]
  - Product prescribing issue [Unknown]
  - Abdominal pain [Recovered/Resolved]
  - Ovarian cancer metastatic [Unknown]

NARRATIVE: CASE EVENT DATE: 2019
